FAERS Safety Report 17143481 (Version 3)
Quarter: 2020Q1

REPORT INFORMATION
  Report Type: Spontaneous
  Country: US (occurrence: US)
  Receive Date: 20191212
  Receipt Date: 20200124
  Transmission Date: 20200409
  Serious: No
  Sender: FDA-Public Use
  Company Number: US-JNJFOC-20191100891

PATIENT
  Sex: Male
  Weight: 72.64 kg

DRUGS (6)
  1. ATENOLOL. [Concomitant]
     Active Substance: ATENOLOL
  2. COGENTIN [Concomitant]
     Active Substance: BENZTROPINE MESYLATE
     Indication: EXTRAPYRAMIDAL DISORDER
  3. SIMVASTATIN. [Concomitant]
     Active Substance: SIMVASTATIN
  4. SPRAVATO [Suspect]
     Active Substance: ESKETAMINE
     Indication: TARDIVE DYSKINESIA
  5. SPRAVATO [Suspect]
     Active Substance: ESKETAMINE
     Indication: AKATHISIA
  6. DULOXETINE. [Concomitant]
     Active Substance: DULOXETINE
     Indication: ANTIDEPRESSANT THERAPY

REACTIONS (2)
  - Product use in unapproved indication [Unknown]
  - Off label use [Unknown]
